FAERS Safety Report 9149097 (Version 1)
Quarter: 2013Q1

REPORT INFORMATION
  Report Type: Spontaneous
  Country: US (occurrence: US)
  Receive Date: 20130308
  Receipt Date: 20130308
  Transmission Date: 20140127
  Serious: Yes (Other)
  Sender: FDA-Public Use
  Company Number: US-PFIZER INC-2013078910

PATIENT
  Age: 36 Year
  Sex: Female

DRUGS (6)
  1. NEURONTIN [Suspect]
     Dosage: UNK
  2. MINIPRESS [Suspect]
     Dosage: UNK
  3. BUTRANS [Suspect]
     Dosage: UNK
  4. HYDROCODONE/ACETAMINOPHEN [Suspect]
     Dosage: UNK
  5. LITHIUM [Suspect]
     Dosage: UNK
  6. TOPAMAX [Suspect]
     Dosage: UNK

REACTIONS (4)
  - Loss of consciousness [Unknown]
  - Head injury [Unknown]
  - Aphasia [Unknown]
  - Amnesia [Unknown]
